FAERS Safety Report 8489139-1 (Version None)
Quarter: 2012Q3

REPORT INFORMATION
  Report Type: 
  Country: None (occurrence: None)
  Receive Date: 20120705
  Receipt Date: 20120702
  Transmission Date: 20120928
  Serious: Yes (Other)
  Sender: FDA-Public Use
  Company Number: PHHY2011DE62583

PATIENT
  Sex: Female

DRUGS (1)
  1. GILENYA [Suspect]
     Indication: MULTIPLE SCLEROSIS
     Dosage: 0.5 MG, UNK
     Route: 048
     Dates: start: 20110620

REACTIONS (19)
  - NASAL INFLAMMATION [None]
  - HYPERSENSITIVITY [None]
  - C-REACTIVE PROTEIN INCREASED [None]
  - FALL [None]
  - GENERAL PHYSICAL HEALTH DETERIORATION [None]
  - GAIT DISTURBANCE [None]
  - VIRAL INFECTION [None]
  - CENTRAL NERVOUS SYSTEM LESION [None]
  - MUSCLE SPASTICITY [None]
  - MALAISE [None]
  - MUSCULAR WEAKNESS [None]
  - COUGH [None]
  - DYSPNOEA [None]
  - DIZZINESS [None]
  - MUCOSAL DRYNESS [None]
  - OEDEMA MUCOSAL [None]
  - TREMOR [None]
  - LACERATION [None]
  - LIVER FUNCTION TEST ABNORMAL [None]
